FAERS Safety Report 23960703 (Version 1)
Quarter: 2024Q2

REPORT INFORMATION
  Report Type: Spontaneous
  Country: US (occurrence: None)
  Receive Date: 20240610
  Receipt Date: 20240610
  Transmission Date: 20240716
  Serious: No
  Sender: FDA-Public Use
  Company Number: None

PATIENT
  Age: 30 Year
  Sex: Female
  Weight: 158.3 kg

DRUGS (2)
  1. COSENTYX [Suspect]
     Active Substance: SECUKINUMAB
     Indication: Psoriasis
     Dosage: FREQUENCY : AS NEEDED;?
     Route: 058
     Dates: start: 202405
  2. COSENTYX [Suspect]
     Active Substance: SECUKINUMAB
     Indication: Drug therapy

REACTIONS (1)
  - Cellulitis [None]
